FAERS Safety Report 20779758 (Version 1)
Quarter: 2022Q2

REPORT INFORMATION
  Report Type: Spontaneous
  Country: US (occurrence: US)
  Receive Date: 20220503
  Receipt Date: 20220503
  Transmission Date: 20220721
  Serious: Yes (Other)
  Sender: FDA-Public Use
  Company Number: US-VER-202100308

PATIENT

DRUGS (1)
  1. TRIPTORELIN [Suspect]
     Active Substance: TRIPTORELIN
     Indication: Prostate cancer
     Route: 065

REACTIONS (8)
  - Blood follicle stimulating hormone decreased [Unknown]
  - Headache [Unknown]
  - Blood luteinising hormone decreased [Unknown]
  - Blood thyroid stimulating hormone decreased [Unknown]
  - Nausea [Unknown]
  - Ophthalmoplegia [Unknown]
  - Pituitary apoplexy [Unknown]
  - Vomiting [Unknown]
